FAERS Safety Report 4791504-0 (Version None)
Quarter: 2005Q4

REPORT INFORMATION
  Report Type: 
  Country: None (occurrence: None)
  Receive Date: 20051007
  Receipt Date: 20041116
  Transmission Date: 20060501
  Serious: No
  Sender: FDA-Public Use
  Company Number: US-BRISTOL-MYERS SQUIBB COMPANY-12767307

PATIENT
  Age: 78 Year
  Sex: Male
  Weight: 84 kg

DRUGS (3)
  1. AVAPRO [Suspect]
     Indication: BRAIN NATRIURETIC PEPTIDE INCREASED
     Dosage: 1/4 OF A 150 MG TABLET DAILY
     Route: 048
     Dates: start: 20041001
  2. ASPIRIN [Concomitant]
     Dosage: 1/2 325 MG TABLET EVERY OTHER DAY
  3. MULTI-VITAMIN [Concomitant]

REACTIONS (3)
  - HEADACHE [None]
  - HYPOTENSION [None]
  - RENAL PAIN [None]
